FAERS Safety Report 10502719 (Version 3)
Quarter: 2015Q2

REPORT INFORMATION
  Report Type: Spontaneous
  Country: US (occurrence: US)
  Receive Date: 20141007
  Receipt Date: 20150612
  Transmission Date: 20150821
  Serious: Yes (Hospitalization)
  Sender: FDA-Public Use
  Company Number: US-BAYER-2014-148065

PATIENT
  Age: 31 Year
  Sex: Female
  Weight: 117.91 kg

DRUGS (6)
  1. DIFLUCAN [Concomitant]
     Active Substance: FLUCONAZOLE
  2. PROZAC [Concomitant]
     Active Substance: FLUOXETINE HYDROCHLORIDE
     Indication: DEPRESSION
  3. MIRENA [Suspect]
     Active Substance: LEVONORGESTREL
     Indication: CONTRACEPTION
     Dosage: 20 MCG/24HR, CONT
     Route: 015
     Dates: start: 20120814, end: 20130915
  4. MIRENA [Suspect]
     Active Substance: LEVONORGESTREL
     Indication: MENORRHAGIA
  5. PROZAC [Concomitant]
     Active Substance: FLUOXETINE HYDROCHLORIDE
     Indication: POSTPARTUM DISORDER
     Dosage: 40 MG, UNK
     Dates: start: 2005
  6. AVIANE [Concomitant]
     Active Substance: ETHINYL ESTRADIOL\LEVONORGESTREL

REACTIONS (6)
  - Pain [None]
  - Device difficult to use [None]
  - Device dislocation [None]
  - Drug ineffective [None]
  - Embedded device [None]
  - Injury [None]

NARRATIVE: CASE EVENT DATE: 20130725
